FAERS Safety Report 23619217 (Version 1)
Quarter: 2024Q1

REPORT INFORMATION
  Report Type: Other
  Country: US (occurrence: US)
  Receive Date: 20240311
  Receipt Date: 20240311
  Transmission Date: 20240410
  Serious: Yes (Hospitalization)
  Sender: FDA-Public Use
  Company Number: US-HLS-202400075

PATIENT
  Sex: Female

DRUGS (1)
  1. CLOZAPINE [Suspect]
     Active Substance: CLOZAPINE
     Indication: Major depression
     Route: 065

REACTIONS (4)
  - Chest discomfort [Unknown]
  - Pyrexia [Recovered/Resolved]
  - Rhinorrhoea [Unknown]
  - Oropharyngeal pain [Unknown]
